FAERS Safety Report 9921840 (Version 2)
Quarter: 2014Q2

REPORT INFORMATION
  Report Type: Spontaneous
  Country: GB (occurrence: GB)
  Receive Date: 20140225
  Receipt Date: 20140527
  Transmission Date: 20141212
  Serious: Yes (Death, Life-Threatening, Other)
  Sender: FDA-Public Use
  Company Number: GB-PFIZER INC-2014050829

PATIENT
  Age: 81 Year
  Sex: Male
  Weight: 76.15 kg

DRUGS (7)
  1. LANSOPRAZOLE [Suspect]
     Dosage: 30 MG, 1X/DAY (IN THE MORNING)
     Route: 048
     Dates: end: 20131228
  2. TAZOCIN [Suspect]
     Indication: PNEUMONIA
     Dosage: 4.5 G, UNIT DOSE
     Route: 042
     Dates: start: 20131216, end: 20131221
  3. TAZOCIN [Suspect]
     Dosage: UNK
     Route: 042
     Dates: start: 20131228
  4. AMOXICILLIN SODIUM [Suspect]
     Indication: URINARY TRACT INFECTION
     Dosage: 500 MG, 3X/DAY
     Route: 048
     Dates: start: 20131214, end: 20131216
  5. FERROUS SULFATE [Suspect]
     Dosage: 200 MG, 3X/DAY
     Route: 048
     Dates: end: 20131228
  6. SENNA [Suspect]
     Dosage: 15 MG, 1X/DAY (AT NIGHT)
     Route: 048
     Dates: end: 20131223
  7. LACTULOSE [Suspect]
     Dosage: 15 ML, 2X/DAY
     Route: 048
     Dates: end: 20131228

REACTIONS (2)
  - Death [Fatal]
  - Clostridium difficile colitis [Not Recovered/Not Resolved]
